FAERS Safety Report 16977120 (Version 1)
Quarter: 2019Q4

REPORT INFORMATION
  Report Type: Spontaneous
  Country: US (occurrence: US)
  Receive Date: 20190915
  Receipt Date: 20190915
  Transmission Date: 20200122
  Serious: No
  Sender: FDA-Public Use
  Company Number: None

PATIENT
  Sex: Female

DRUGS (1)
  1. ENBREL [Suspect]
     Active Substance: ETANERCEPT
     Indication: FIBROMYALGIA
     Dosage: ?          OTHER FREQUENCY:1 PEN EVRY 7 DAYS;?
     Dates: start: 20190218, end: 20190911

REACTIONS (1)
  - Drug ineffective [None]
